FAERS Safety Report 26117089 (Version 1)
Quarter: 2025Q4

REPORT INFORMATION
  Report Type: Spontaneous
  Country: EU (occurrence: EU)
  Receive Date: 20251203
  Receipt Date: 20251203
  Transmission Date: 20260118
  Serious: Yes (Death)
  Sender: ZAMBON
  Company Number: EU-ZAMBON-2025001070

PATIENT

DRUGS (10)
  1. FOSFOMYCIN TROMETHAMINE [Suspect]
     Active Substance: FOSFOMYCIN TROMETHAMINE
     Indication: Meningitis pneumococcal
     Dosage: UNK
     Dates: start: 20250929, end: 20251019
  2. LEVETIRACETAM [Suspect]
     Active Substance: LEVETIRACETAM
     Indication: Status epilepticus
     Dosage: 500 MG X2 DAILY
     Route: 042
     Dates: start: 20250918
  3. VALACYCLOVIR HYDROCHLORIDE [Suspect]
     Active Substance: VALACYCLOVIR HYDROCHLORIDE
     Indication: Rash vesicular
     Dosage: NR
     Dates: start: 20250922
  4. ACYCLOVIR [Suspect]
     Active Substance: ACYCLOVIR
     Indication: Rash vesicular
     Dosage: NR
     Dates: start: 20250923
  5. FLUCONAZOLE [Suspect]
     Active Substance: FLUCONAZOLE
     Indication: Systemic candida
     Dosage: NR
     Route: 042
     Dates: start: 20250926
  6. CEFTRIAXONE SODIUM [Suspect]
     Active Substance: CEFTRIAXONE SODIUM
     Indication: Meningitis pneumococcal
     Dosage: NR
     Route: 042
     Dates: start: 20250920, end: 20250921
  7. CEFTRIAXONE SODIUM [Suspect]
     Active Substance: CEFTRIAXONE SODIUM
     Dosage: NR
     Route: 042
     Dates: start: 20250923, end: 20251001
  8. VANCOMYCIN [Suspect]
     Active Substance: VANCOMYCIN
     Indication: Meningitis pneumococcal
     Dosage: NR
     Dates: start: 20250920, end: 20250923
  9. RIFAMPIN [Suspect]
     Active Substance: RIFAMPIN
     Indication: Meningitis pneumococcal
     Dosage: NR
     Dates: start: 20250929, end: 20251019
  10. CEFOTAXIME [Suspect]
     Active Substance: CEFOTAXIME SODIUM
     Indication: Meningitis pneumococcal
     Dosage: NR
     Dates: start: 20250929, end: 20251019

REACTIONS (2)
  - Drug reaction with eosinophilia and systemic symptoms [Fatal]
  - Product use in unapproved indication [Unknown]

NARRATIVE: CASE EVENT DATE: 20251001
